FAERS Safety Report 6290710-6 (Version None)
Quarter: 2009Q3

REPORT INFORMATION
  Report Type: 
  Country: None (occurrence: None)
  Receive Date: 20090728
  Receipt Date: 20090728
  Transmission Date: 20100115
  Serious: No
  Sender: FDA-Public Use
  Company Number: None

PATIENT
  Age: 22 Year
  Sex: Male
  Weight: 90.7194 kg

DRUGS (1)
  1. ARTANE [Suspect]
     Indication: ADVERSE DRUG REACTION
     Dosage: 5 MG DOWN TO 1 MG 3 TIMES A DAY PO
     Route: 048
     Dates: start: 20081011, end: 20090315

REACTIONS (3)
  - DISTURBANCE IN ATTENTION [None]
  - OSCILLOPSIA [None]
  - VISION BLURRED [None]
